FAERS Safety Report 4592501-0 (Version None)
Quarter: 2005Q1

REPORT INFORMATION
  Report Type: 
  Country: None (occurrence: None)
  Receive Date: 20050222
  Receipt Date: 20050209
  Transmission Date: 20050727
  Serious: Yes (Life-Threatening)
  Sender: FDA-Public Use
  Company Number: 2005026851

PATIENT
  Age: 71 Year
  Sex: Male

DRUGS (6)
  1. XALATAN [Suspect]
     Indication: ILL-DEFINED DISORDER
     Dosage: 1 DROP DAILY, OPHTHALMIC
     Route: 047
     Dates: start: 20031101
  2. ATORVASTATIN CALCIUM [Suspect]
     Indication: HYPERLIPIDAEMIA
     Dosage: 10 MG, DAILY, ORAL
     Route: 048
     Dates: start: 20030314
  3. TIMOLOL MALEATE [Suspect]
     Indication: GLAUCOMA
     Dosage: 0.25  (0.25 DAILY), OPHTHALMIC
     Route: 047
     Dates: start: 20031101
  4. LISINOPRIL [Suspect]
     Indication: HYPERTENSION
     Dosage: 20 MG (20 MG, DAILY), ORAL
     Route: 048
     Dates: start: 20040224
  5. ASPIRIN [Suspect]
     Indication: ILL-DEFINED DISORDER
     Dosage: 300 MG (100 MG, DAILY), ORAL
     Route: 048
     Dates: start: 20030115
  6. OMEPRAZOLE [Suspect]
     Indication: ILL-DEFINED DISORDER
     Dosage: 20 MG (20 MG, DAILY), ORAL   LONG TERM
     Route: 048
     Dates: end: 20040114

REACTIONS (1)
  - BRADYCARDIA [None]
